FAERS Safety Report 8790649 (Version 1)
Quarter: 2012Q4

REPORT INFORMATION
  Report Type: Spontaneous
  Country: US (occurrence: None)
  Receive Date: 20120910
  Receipt Date: 20120910
  Transmission Date: 20130627
  Serious: Yes (Other)
  Sender: FDA-Public Use
  Company Number: A12-116

PATIENT
  Age: 9 Year
  Sex: Male
  Weight: 77.11 kg

DRUGS (4)
  1. MIXED HOUSE DUST MITE 10,000AU/ALK-ABELLO, INC. [Suspect]
     Dosage: 1 drop, puncture; once 023
     Route: 023
     Dates: start: 20120712
  2. ALLERGENIC EXTRACT- MITE, DERMATOPHAGOIDES PTERONYSSINUS [Suspect]
     Dosage: 1 drop, puncture; once 023
     Route: 023
     Dates: start: 20120712
  3. NORMAL SALINE WITH PHENOL (DILUENT); ALLERGY LABORATORIES, INC. LOT 2051611B,EXP 05/2015 THERAPY DATE 07/12/2012 [Concomitant]
  4. NORMAL SALINE WITH PHENOL (DILUENT); [Concomitant]

REACTIONS (5)
  - Application site pruritus [None]
  - Urticaria [None]
  - Throat tightness [None]
  - Dyspnoea [None]
  - Flushing [None]
